FAERS Safety Report 11656775 (Version 2)
Quarter: 2015Q4

REPORT INFORMATION
  Report Type: Spontaneous
  Country: IT (occurrence: DE)
  Receive Date: 20151023
  Receipt Date: 20151026
  Transmission Date: 20160304
  Serious: Yes (Other)
  Sender: FDA-Public Use
  Company Number: IT-009507513-1510DEU010548

PATIENT
  Age: 89 Year
  Sex: Female

DRUGS (9)
  1. LERCANIDIPINE [Concomitant]
     Active Substance: LERCANIDIPINE
  2. PANTOPRAZOLE [Concomitant]
     Active Substance: PANTOPRAZOLE SODIUM
  3. METOPROLOL [Concomitant]
     Active Substance: METOPROLOL
  4. OXAZEPAM. [Concomitant]
     Active Substance: OXAZEPAM
  5. RIVAROXABAN [Suspect]
     Active Substance: RIVAROXABAN
  6. TORSEMIDE. [Concomitant]
     Active Substance: TORSEMIDE
  7. SIMVASTATIN. [Suspect]
     Active Substance: SIMVASTATIN
     Route: 048
  8. PHENPROCOUMON [Concomitant]
     Active Substance: PHENPROCOUMON
  9. VALSARTAN. [Concomitant]
     Active Substance: VALSARTAN

REACTIONS (1)
  - Drug-induced liver injury [Unknown]
